FAERS Safety Report 24216827 (Version 1)
Quarter: 2024Q3

REPORT INFORMATION
  Report Type: Spontaneous
  Country: US (occurrence: US)
  Receive Date: 20240816
  Receipt Date: 20240816
  Transmission Date: 20241017
  Serious: No
  Sender: AMGEN
  Company Number: US-AMGEN-USASP2024162961

PATIENT
  Age: 73 Year
  Sex: Female

DRUGS (1)
  1. TEPEZZA [Suspect]
     Active Substance: TEPROTUMUMAB-TRBW
     Indication: Endocrine ophthalmopathy
     Dosage: UNK, Q3WK
     Route: 042
     Dates: start: 20220624, end: 20230110

REACTIONS (7)
  - Rash [Unknown]
  - Erythema [Unknown]
  - Pruritus [Unknown]
  - Formication [Unknown]
  - Vascular wall discolouration [Unknown]
  - Muscle spasms [Recovered/Resolved]
  - Alopecia [Unknown]

NARRATIVE: CASE EVENT DATE: 20230101
